FAERS Safety Report 17298261 (Version 1)
Quarter: 2020Q1

REPORT INFORMATION
  Report Type: Spontaneous
  Country: DE (occurrence: DE)
  Receive Date: 20200121
  Receipt Date: 20200121
  Transmission Date: 20200409
  Serious: Yes (Life-Threatening, Other)
  Sender: FDA-Public Use
  Company Number: DE-ELI_LILLY_AND_COMPANY-DE202001007182

PATIENT
  Age: 75 Year
  Sex: Male
  Weight: 125 kg

DRUGS (10)
  1. EZETROL [Concomitant]
     Active Substance: EZETIMIBE
     Indication: PRODUCT USED FOR UNKNOWN INDICATION
     Dosage: DAILY DOSE: 10 MG MILLIGRAM(S) EVERY DAY
     Route: 048
  2. TRULICITY [Suspect]
     Active Substance: DULAGLUTIDE
     Indication: PRODUCT USED FOR UNKNOWN INDICATION
     Dosage: UNK UNK, UNKNOWN
     Route: 065
  3. JARDIANCE [Suspect]
     Active Substance: EMPAGLIFLOZIN
     Indication: PRODUCT USED FOR UNKNOWN INDICATION
     Dosage: DAILY DOSE: 10 MG MILLIGRAM(S) EVERY DAY
     Route: 065
  4. DUODART [Concomitant]
     Active Substance: DUTASTERIDE\TAMSULOSIN
     Indication: PRODUCT USED FOR UNKNOWN INDICATION
     Dosage: DAILY DOSE: 0.9 MG MILLIGRAM(S) EVERY DAY
     Route: 065
  5. METFORMIN RATIOPHARM [Suspect]
     Active Substance: METFORMIN HYDROCHLORIDE
     Indication: PRODUCT USED FOR UNKNOWN INDICATION
     Dosage: DAILY DOSE: 2000 MG MILLIGRAM(S) EVERY DAY
     Route: 065
  6. URSOFALK [Concomitant]
     Active Substance: URSODIOL
     Indication: PRODUCT USED FOR UNKNOWN INDICATION
     Dosage: 1000 ONCE A DAY
     Route: 065
  7. ALLOPURINOL-RATIOPHARM [Concomitant]
     Active Substance: ALLOPURINOL
     Indication: PRODUCT USED FOR UNKNOWN INDICATION
     Dosage: DAILY DOSE: 300 MG MILLIGRAM(S) EVERY DAY
     Route: 065
  8. PANTOPRAZOL [PANTOPRAZOLE] [Concomitant]
     Active Substance: PANTOPRAZOLE
     Indication: PRODUCT USED FOR UNKNOWN INDICATION
     Dosage: DAILY DOSE: 20 MG MILLIGRAM(S) EVERY DAY
     Route: 065
  9. ASS HEXAL [Concomitant]
     Active Substance: ASPIRIN
     Indication: PRODUCT USED FOR UNKNOWN INDICATION
     Dosage: DAILY DOSE: 100 MG MILLIGRAM(S) EVERY DAY
     Route: 065
  10. XELEVIA [Suspect]
     Active Substance: SITAGLIPTIN PHOSPHATE
     Indication: PRODUCT USED FOR UNKNOWN INDICATION
     Dosage: DAILY DOSE: 100 MG MILLIGRAM(S) EVERY DAY
     Route: 065

REACTIONS (16)
  - Pruritus [Unknown]
  - Hypertensive heart disease [Unknown]
  - Cholelithiasis [Unknown]
  - Alopecia [Unknown]
  - Fatigue [Unknown]
  - Drug-induced liver injury [Unknown]
  - Performance status decreased [Unknown]
  - Cardiac discomfort [Unknown]
  - General physical health deterioration [Unknown]
  - Splenomegaly [Unknown]
  - Weight decreased [Unknown]
  - Autoimmune hepatitis [Unknown]
  - Muscle atrophy [Unknown]
  - Balanitis candida [Unknown]
  - Carotid artery stenosis [Unknown]
  - Gynaecomastia [Unknown]

NARRATIVE: CASE EVENT DATE: 2016
